FAERS Safety Report 4676974-0 (Version None)
Quarter: 2005Q2

REPORT INFORMATION
  Report Type: 
  Country: None (occurrence: None)
  Receive Date: 20050526
  Receipt Date: 20050518
  Transmission Date: 20051028
  Serious: Yes (Death)
  Sender: FDA-Public Use
  Company Number: MEDI-0002887

PATIENT
  Age: 16 Month
  Sex: Male
  Weight: 10 kg

DRUGS (17)
  1. SYNAGIS [Suspect]
     Indication: ANTIVIRAL PROPHYLAXIS
     Dosage: SEE IMAGE
     Route: 030
     Dates: start: 20041103, end: 20050111
  2. SYNAGIS [Suspect]
     Indication: ANTIVIRAL PROPHYLAXIS
     Dosage: SEE IMAGE
     Route: 030
     Dates: start: 20041103
  3. SYNAGIS [Suspect]
     Indication: ANTIVIRAL PROPHYLAXIS
     Dosage: SEE IMAGE
     Route: 030
     Dates: start: 20041206
  4. SYNAGIS [Suspect]
  5. ALBUTEROL MDI  (SALBUTAMOL) [Concomitant]
  6. DIGOXIN [Concomitant]
  7. CAPTOPRIL (CAPTOPIRL) [Concomitant]
  8. POTASSIUM CITRATE [Concomitant]
  9. PHENOBARBITAL TAB [Concomitant]
  10. RANITIDINE [Concomitant]
  11. SUCRALFATE [Concomitant]
  12. FUROSEMIDE [Concomitant]
  13. SODIUM CHLORIDE [Concomitant]
  14. POLY-VI- SOL (ERGOCALCIFEROL, ASCORBIC ACID, THIAMINE, RETINOL, RIBOFL [Concomitant]
  15. DIAZEPAM [Concomitant]
  16. GLYCOPYRROLATE [Concomitant]
  17. DIAZEPAM [Concomitant]

REACTIONS (6)
  - CARDIAC FAILURE CONGESTIVE [None]
  - CARDIOMEGALY [None]
  - HEPATOSPLENOMEGALY [None]
  - PULMONARY CONGESTION [None]
  - RESPIRATORY ARREST [None]
  - SUBDURAL HAEMATOMA [None]
